FAERS Safety Report 21450540 (Version 1)
Quarter: 2022Q4

REPORT INFORMATION
  Report Type: Spontaneous
  Country: US (occurrence: US)
  Receive Date: 20221013
  Receipt Date: 20221013
  Transmission Date: 20230113
  Serious: Yes (Hospitalization)
  Sender: FDA-Public Use
  Company Number: US-AMGEN-USASP2022172741

PATIENT
  Age: 5 Year

DRUGS (1)
  1. BLINCYTO [Suspect]
     Active Substance: BLINATUMOMAB
     Indication: Minimal residual disease
     Dosage: 15 MICROGRAM/SQ. METER, QD
     Route: 065
     Dates: start: 20220310

REACTIONS (4)
  - Tachycardia [Not Recovered/Not Resolved]
  - Lumbar puncture [Not Recovered/Not Resolved]
  - Post procedural fever [Not Recovered/Not Resolved]
  - Procedural pain [Not Recovered/Not Resolved]

NARRATIVE: CASE EVENT DATE: 20221003
